FAERS Safety Report 13236758 (Version 2)
Quarter: 2017Q1

REPORT INFORMATION
  Report Type: Spontaneous
  Country: FR (occurrence: FR)
  Receive Date: 20170215
  Receipt Date: 20170327
  Transmission Date: 20170428
  Serious: Yes (Other)
  Sender: FDA-Public Use
  Company Number: FR-SA-2017SA023895

PATIENT
  Age: 73 Year
  Sex: Female

DRUGS (2)
  1. SPAGULAX [Concomitant]
     Active Substance: PLANTAGO OVATA SEED
     Indication: CONSTIPATION
     Route: 048
     Dates: start: 20170127
  2. LOVENOX [Suspect]
     Active Substance: ENOXAPARIN SODIUM
     Dosage: ROUTE: INJECTION
     Dates: start: 20170127

REACTIONS (6)
  - Headache [Not Recovered/Not Resolved]
  - Abdominal distension [Not Recovered/Not Resolved]
  - Injection site oedema [Not Recovered/Not Resolved]
  - Haematoma [Not Recovered/Not Resolved]
  - Epistaxis [Not Recovered/Not Resolved]
  - Injection site haematoma [Not Recovered/Not Resolved]
